FAERS Safety Report 15367631 (Version 1)
Quarter: 2018Q3

REPORT INFORMATION
  Report Type: Spontaneous
  Country: AU (occurrence: AU)
  Receive Date: 20180910
  Receipt Date: 20180910
  Transmission Date: 20181010
  Serious: Yes (Hospitalization)
  Sender: FDA-Public Use
  Company Number: AU-BAUSCH-BL-2018-024016

PATIENT
  Age: 29 Year
  Sex: Female

DRUGS (3)
  1. METHYLDOPA. [Suspect]
     Active Substance: METHYLDOPA
     Indication: HYPERTENSION
     Route: 065
  2. NIFEDIPINE. [Suspect]
     Active Substance: NIFEDIPINE
     Indication: HYPERTENSION
     Dosage: AT 11 WEEK OF GESTATION
     Route: 065
  3. PRAZOSIN. [Suspect]
     Active Substance: PRAZOSIN
     Indication: HYPERTENSION
     Route: 065

REACTIONS (2)
  - Blood pressure increased [Unknown]
  - Exposure during pregnancy [Recovered/Resolved]
